FAERS Safety Report 16209191 (Version 7)
Quarter: 2019Q4

REPORT INFORMATION
  Report Type: Spontaneous
  Country: US (occurrence: US)
  Receive Date: 20190417
  Receipt Date: 20191011
  Transmission Date: 20200122
  Serious: Yes (Other)
  Sender: FDA-Public Use
  Company Number: US-LEXICON PHARMACEUTICALS, INC-19-1606-00372

PATIENT
  Sex: Female

DRUGS (12)
  1. AFINITOR [Suspect]
     Active Substance: EVEROLIMUS
  2. MORPHINE [Concomitant]
     Active Substance: MORPHINE
  3. NIFEDIPINE. [Concomitant]
     Active Substance: NIFEDIPINE
  4. TELOTRISTAT ETHYL [Suspect]
     Active Substance: TELOTRISTAT ETHYL
     Route: 048
  5. PROCHLORPERAZINE. [Concomitant]
     Active Substance: PROCHLORPERAZINE
  6. DIAZEPAM. [Concomitant]
     Active Substance: DIAZEPAM
  7. TELOTRISTAT ETHYL [Suspect]
     Active Substance: TELOTRISTAT ETHYL
     Indication: DIARRHOEA
     Route: 048
  8. PROMETHAZINE [Concomitant]
     Active Substance: PROMETHAZINE HYDROCHLORIDE
  9. CLONIDINE. [Concomitant]
     Active Substance: CLONIDINE
  10. METFORMIN [Concomitant]
     Active Substance: METFORMIN HYDROCHLORIDE
  11. LISINOPRIL. [Concomitant]
     Active Substance: LISINOPRIL
  12. TELOTRISTAT ETHYL [Suspect]
     Active Substance: TELOTRISTAT ETHYL
     Indication: CARCINOID TUMOUR PULMONARY
     Route: 048
     Dates: start: 20190313

REACTIONS (8)
  - Diarrhoea [Unknown]
  - Serum serotonin increased [Unknown]
  - Nausea [Not Recovered/Not Resolved]
  - Breast cancer [Unknown]
  - Rash [Recovered/Resolved]
  - Metastases to bone [Unknown]
  - Off label use [Not Recovered/Not Resolved]
  - Abdominal pain [Not Recovered/Not Resolved]
